FAERS Safety Report 20536206 (Version 8)
Quarter: 2022Q3

REPORT INFORMATION
  Report Type: Report from Study
  Country: US (occurrence: US)
  Receive Date: 20220302
  Receipt Date: 20220714
  Transmission Date: 20221027
  Serious: Yes (Hospitalization, Other)
  Sender: FDA-Public Use
  Company Number: US-NOVARTISPH-NVSC2022US041864

PATIENT
  Age: 68 Year
  Sex: Male

DRUGS (5)
  1. ENTRESTO [Suspect]
     Active Substance: SACUBITRIL\VALSARTAN
     Indication: Product used for unknown indication
     Dosage: 1 DOSAGE FORM (97/103 MG)
     Route: 048
     Dates: start: 2020
  2. ENTRESTO [Suspect]
     Active Substance: SACUBITRIL\VALSARTAN
     Dosage: 1 DOSAGE FORM, BID (24/26 MG)
     Route: 048
     Dates: start: 2020
  3. ENTRESTO [Suspect]
     Active Substance: SACUBITRIL\VALSARTAN
     Dosage: UNK (LAST DOSE)
     Route: 065
     Dates: start: 20220309
  4. METOPROLOL [Concomitant]
     Active Substance: METOPROLOL
     Indication: Product used for unknown indication
     Dosage: UNK
     Route: 065
  5. ATORVASTATIN [Concomitant]
     Active Substance: ATORVASTATIN
     Indication: Product used for unknown indication
     Dosage: UNK
     Route: 065

REACTIONS (30)
  - Oxygen saturation decreased [Unknown]
  - Myocardial infarction [Unknown]
  - Neuropathy peripheral [Unknown]
  - Cervical cord compression [Unknown]
  - Feeling abnormal [Unknown]
  - Musculoskeletal stiffness [Unknown]
  - Pain in extremity [Unknown]
  - Pyrexia [Unknown]
  - Rhinorrhoea [Unknown]
  - Abdominal pain upper [Unknown]
  - Weight decreased [Unknown]
  - Stress [Unknown]
  - Gluten sensitivity [Unknown]
  - Gastroenteritis viral [Recovering/Resolving]
  - Abdominal discomfort [Recovering/Resolving]
  - Diarrhoea [Recovering/Resolving]
  - Arthralgia [Unknown]
  - COVID-19 [Unknown]
  - Ligament sprain [Unknown]
  - Fatigue [Unknown]
  - Vertigo [Unknown]
  - Hypotension [Unknown]
  - Gastrointestinal disorder [Unknown]
  - Decreased appetite [Unknown]
  - Product availability issue [Unknown]
  - Illness [Unknown]
  - Bone contusion [Unknown]
  - Oropharyngeal pain [Unknown]
  - Weight fluctuation [Unknown]
  - Inappropriate schedule of product administration [Unknown]

NARRATIVE: CASE EVENT DATE: 20201201
